FAERS Safety Report 7339814-7 (Version None)
Quarter: 2011Q1

REPORT INFORMATION
  Report Type: 
  Country: None (occurrence: None)
  Receive Date: 20110309
  Receipt Date: 20100113
  Transmission Date: 20110831
  Serious: No
  Sender: FDA-Public Use
  Company Number: US-BAYER-201011435NA

PATIENT
  Sex: Female

DRUGS (2)
  1. MIRENA [Suspect]
     Dosage: 20 MCG/24HR, UNK
     Route: 015
  2. VITAMIN B-12 [Concomitant]

REACTIONS (5)
  - PANIC ATTACK [None]
  - ARTHRALGIA [None]
  - FATIGUE [None]
  - TREMOR [None]
  - CHEST DISCOMFORT [None]
